FAERS Safety Report 26110443 (Version 2)
Quarter: 2025Q4

REPORT INFORMATION
  Report Type: Spontaneous
  Country: EU (occurrence: EU)
  Receive Date: 20251202
  Receipt Date: 20251216
  Transmission Date: 20260118
  Serious: Yes (Other)
  Sender: NOVARTIS
  Company Number: EU-002147023-NVSC2025RO181764

PATIENT
  Age: 57 Year
  Sex: Female

DRUGS (4)
  1. KISQALI [Suspect]
     Active Substance: RIBOCICLIB SUCCINATE
     Indication: Breast cancer metastatic
     Dosage: 200 MG, TID (200 MG X  3 PER DAY, 21  TREATMENT  DAYS, 7  DAYS BREAK)
     Route: 048
     Dates: start: 202406, end: 20251105
  2. KISQALI [Suspect]
     Active Substance: RIBOCICLIB SUCCINATE
     Dosage: 200 MG BID (200 MG X  2 PER DAY, 21  TREATMENT  DAYS, 7  DAYS BREAK)
     Route: 048
     Dates: start: 20241112, end: 20251008
  3. LETROZOLE [Concomitant]
     Active Substance: LETROZOLE
     Indication: Breast cancer metastatic
     Dosage: 2.5 MG, QD
     Route: 065
     Dates: start: 202406
  4. ZOMETA [Concomitant]
     Active Substance: ZOLEDRONIC ACID
     Indication: Breast cancer metastatic
     Dosage: 4 MG, 6 MONTHLY ADMINISTRATIONS, FOLLOWED BY ADMINISTRATION EVERY 3 MONTHS
     Route: 065
     Dates: start: 202411

REACTIONS (3)
  - Cardiotoxicity [Recovered/Resolved]
  - Cardiotoxicity [Recovered/Resolved]
  - Metastases to bone [Unknown]

NARRATIVE: CASE EVENT DATE: 20241105
